FAERS Safety Report 4635494-X (Version None)
Quarter: 2005Q2

REPORT INFORMATION
  Report Type: 
  Country: None (occurrence: None)
  Receive Date: 20050413
  Receipt Date: 20050329
  Transmission Date: 20051028
  Serious: Yes (Other)
  Sender: FDA-Public Use
  Company Number: PHHO2005JP01768

PATIENT
  Age: 81 Year
  Sex: Female
  Weight: 142.0212 kg

DRUGS (2)
  1. VISUDYNE [Suspect]
     Indication: MACULAR DEGENERATION
     Dosage: 4.2 ML DAILY IV
     Route: 042
     Dates: start: 20041217, end: 20041217
  2. DISOPYRAMIDE [Concomitant]

REACTIONS (3)
  - DETACHMENT OF RETINAL PIGMENT EPITHELIUM [None]
  - DISEASE PROGRESSION [None]
  - RETINAL SCAR [None]
